FAERS Safety Report 7410027-3 (Version None)
Quarter: 2011Q2

REPORT INFORMATION
  Report Type: 
  Country: None (occurrence: None)
  Receive Date: 20110412
  Receipt Date: 20110405
  Transmission Date: 20111010
  Serious: Yes (Hospitalization)
  Sender: FDA-Public Use
  Company Number: PHHO2011SE05336

PATIENT
  Sex: Female
  Weight: 67 kg

DRUGS (2)
  1. AMN107 [Suspect]
     Indication: GASTROINTESTINAL STROMAL TUMOUR
     Dosage: 800 MG, BID
     Route: 048
     Dates: start: 20100914, end: 20110323
  2. CODEINE [Concomitant]

REACTIONS (1)
  - CEREBRAL INFARCTION [None]
